FAERS Safety Report 21987566 (Version 14)
Quarter: 2023Q4

REPORT INFORMATION
  Report Type: Report from Study
  Country: BR (occurrence: BR)
  Receive Date: 20230214
  Receipt Date: 20231006
  Transmission Date: 20240109
  Serious: Yes (Death, Hospitalization, Other)
  Sender: FDA-Public Use
  Company Number: BR-JNJFOC-20230218017

PATIENT
  Age: 69 Year
  Sex: Male
  Weight: 61.9 kg

DRUGS (3)
  1. DARATUMUMAB [Suspect]
     Active Substance: DARATUMUMAB
     Indication: Plasma cell myeloma refractory
     Dosage: MOST RECENT DOSE DARATUMUMAB WAS ADMINISTERED ON 26-JAN-2023
     Route: 058
     Dates: start: 20230119
  2. POMALIDOMIDE [Suspect]
     Active Substance: POMALIDOMIDE
     Indication: Plasma cell myeloma refractory
     Dosage: MOST RECENT DOSE OF DRUG ADMINISTERED ON 31-JAN-2023.
     Route: 048
     Dates: start: 20230119
  3. DEXAMETHASONE [Suspect]
     Active Substance: DEXAMETHASONE
     Indication: Plasma cell myeloma refractory
     Dosage: MOST RECENT DOSE OF DEXAMETHASONE WAS ADMINISTERED ON 26-JAN-2023
     Route: 048
     Dates: start: 20230119

REACTIONS (4)
  - Plasma cell myeloma refractory [Fatal]
  - Febrile neutropenia [Recovered/Resolved]
  - Neutropenia [Recovered/Resolved]
  - Thrombocytopenia [Recovered/Resolved]

NARRATIVE: CASE EVENT DATE: 20230129
